FAERS Safety Report 11371921 (Version 7)
Quarter: 2017Q3

REPORT INFORMATION
  Report Type: Spontaneous
  Country: JP (occurrence: JP)
  Receive Date: 20150812
  Receipt Date: 20170804
  Transmission Date: 20171127
  Serious: Yes (Hospitalization, Other)
  Sender: FDA-Public Use
  Company Number: JP-GILEAD-2015-0167362

PATIENT
  Age: 61 Year
  Sex: Female

DRUGS (10)
  1. HEPSERA [Suspect]
     Active Substance: ADEFOVIR DIPIVOXIL
     Dosage: 10 MG, QOD
     Route: 048
     Dates: start: 20070712, end: 20150507
  2. TENOFOVIR DISOPROXIL FUMARATE. [Suspect]
     Active Substance: TENOFOVIR DISOPROXIL FUMARATE
     Dosage: 300 MG, UNK
     Route: 048
     Dates: start: 20150605, end: 20150716
  3. ZEFIX [Concomitant]
     Active Substance: LAMIVUDINE
     Indication: CHRONIC HEPATITIS B
     Dosage: UNK UNK, 1D
     Dates: start: 20040302, end: 20070711
  4. ZEFIX [Concomitant]
     Active Substance: LAMIVUDINE
     Dosage: UNK, QOD
     Dates: start: 20070712, end: 20150507
  5. OLMETEC [Concomitant]
     Active Substance: OLMESARTAN MEDOXOMIL
     Indication: PRODUCT USED FOR UNKNOWN INDICATION
     Route: 065
  6. TENOFOVIR DISOPROXIL FUMARATE. [Suspect]
     Active Substance: TENOFOVIR DISOPROXIL FUMARATE
     Indication: CHRONIC HEPATITIS B
     Dosage: 300 MG, QOD
     Route: 048
     Dates: start: 20150508, end: 20150604
  7. LAC-B [Concomitant]
     Active Substance: BIFIDOBACTERIUM SPP.
     Indication: PRODUCT USED FOR UNKNOWN INDICATION
     Route: 065
  8. TENOFOVIR DISOPROXIL FUMARATE. [Suspect]
     Active Substance: TENOFOVIR DISOPROXIL FUMARATE
     Dosage: 300 MG, Q4DAYS
     Route: 048
     Dates: start: 20150717, end: 20170407
  9. ASPARA POTASSIUM [Concomitant]
     Active Substance: POTASSIUM ASPARTATE
     Indication: PRODUCT USED FOR UNKNOWN INDICATION
     Route: 065
  10. HEPSERA [Suspect]
     Active Substance: ADEFOVIR DIPIVOXIL
     Indication: CHRONIC HEPATITIS B
     Dosage: 10 MG, 1D
     Route: 048
     Dates: start: 20051129, end: 20070711

REACTIONS (9)
  - Blood creatinine increased [Recovering/Resolving]
  - Fanconi syndrome acquired [Not Recovered/Not Resolved]
  - Osteomalacia [Unknown]
  - Dehydration [Recovering/Resolving]
  - Fracture [Unknown]
  - Nausea [Recovered/Resolved]
  - Hypophosphataemia [Recovering/Resolving]
  - Vomiting [Not Recovered/Not Resolved]
  - Hyperphosphatasaemia [Recovered/Resolved]

NARRATIVE: CASE EVENT DATE: 20070111
